FAERS Safety Report 7967233-9 (Version None)
Quarter: 2011Q4

REPORT INFORMATION
  Report Type: 
  Country: None (occurrence: None)
  Receive Date: 20111206
  Receipt Date: 20111117
  Transmission Date: 20120403
  Serious: Yes (Congenital Anomaly)
  Sender: FDA-Public Use
  Company Number: ADR-UNK-039

PATIENT
  Age: 217 Day
  Sex: Female
  Weight: 1.92 kg

DRUGS (5)
  1. KALETRA [Suspect]
  2. LAMIVUDINE/ZIDOVUDINE [Suspect]
     Indication: ACQUIRED IMMUNODEFICIENCY SYNDROME
     Dosage: BID + ORAL
     Route: 048
     Dates: start: 20101210
  3. UNKNOWN [Concomitant]
  4. UNKNOWN [Concomitant]
  5. UNKNOWN [Concomitant]

REACTIONS (3)
  - DYSMORPHISM [None]
  - LOW SET EARS [None]
  - MATERNAL DRUGS AFFECTING FOETUS [None]
